FAERS Safety Report 7359496-8 (Version None)
Quarter: 2011Q1

REPORT INFORMATION
  Report Type: 
  Country: None (occurrence: None)
  Receive Date: 20110317
  Receipt Date: 20091201
  Transmission Date: 20110831
  Serious: No
  Sender: FDA-Public Use
  Company Number: US-PFIZER INC-2009280650

PATIENT
  Sex: Female

DRUGS (6)
  1. NIFEDIPINE [Suspect]
     Dosage: UNK
  2. NORVASC [Suspect]
     Dosage: 5 MG, 1X/DAY
  3. LOPRESSOR [Suspect]
  4. COMBIVENT [Suspect]
  5. MULTIVITAMIN [Suspect]
  6. LISINOPRIL [Suspect]

REACTIONS (5)
  - ADVERSE DRUG REACTION [None]
  - OEDEMA PERIPHERAL [None]
  - WEIGHT INCREASED [None]
  - HERPES ZOSTER [None]
  - ABDOMINAL DISTENSION [None]
